FAERS Safety Report 15733623 (Version 2)
Quarter: 2019Q1

REPORT INFORMATION
  Report Type: Spontaneous
  Country: JP (occurrence: JP)
  Receive Date: 20181218
  Receipt Date: 20190208
  Transmission Date: 20190417
  Serious: Yes (Hospitalization)
  Sender: FDA-Public Use
  Company Number: JP-SUN PHARMACEUTICAL INDUSTRIES LTD-2018R1-193962

PATIENT
  Age: 59 Year
  Sex: Female

DRUGS (5)
  1. PROMETHAZINE [Suspect]
     Active Substance: PROMETHAZINE\PROMETHAZINE HYDROCHLORIDE
     Indication: BIPOLAR I DISORDER
     Dosage: UNK
     Route: 048
  2. LITHIUM. [Suspect]
     Active Substance: LITHIUM
     Indication: BIPOLAR I DISORDER
     Dosage: UNK
     Route: 048
  3. SULPIRIDE [Suspect]
     Active Substance: SULPIRIDE
     Indication: BIPOLAR I DISORDER
     Route: 048
  4. LEVOMEPROMAZINE [Suspect]
     Active Substance: LEVOMEPROMAZINE
     Indication: BIPOLAR I DISORDER
     Dosage: UNK
     Route: 048
  5. MAPROTILINE [Suspect]
     Active Substance: MAPROTILINE
     Indication: BIPOLAR I DISORDER
     Route: 048

REACTIONS (8)
  - Cardiac failure [Unknown]
  - Acute kidney injury [Unknown]
  - Necrotising colitis [Unknown]
  - Gastrointestinal haemorrhage [Unknown]
  - Mechanical ileus [Unknown]
  - Neuroleptic malignant syndrome [Unknown]
  - Respiratory failure [Unknown]
  - Multi-organ disorder [Unknown]
